FAERS Safety Report 16540545 (Version 4)
Quarter: 2021Q1

REPORT INFORMATION
  Report Type: Spontaneous
  Country: GB (occurrence: GB)
  Receive Date: 20190708
  Receipt Date: 20210311
  Transmission Date: 20210419
  Serious: Yes (Other)
  Sender: FDA-Public Use
  Company Number: GB-ACCORD-137155

PATIENT
  Age: 77 Year
  Sex: Male
  Weight: 71.66 kg

DRUGS (13)
  1. ADCAL?D3 [Suspect]
     Active Substance: CALCIUM CARBONATE\CHOLECALCIFEROL
     Indication: HIP FRACTURE
     Route: 048
     Dates: start: 20170107, end: 20190605
  2. BETAHISTINE [Suspect]
     Active Substance: BETAHISTINE
     Indication: EAR DISORDER
     Route: 048
     Dates: start: 2006
  3. LEVOTHYROXIN ACCORD [Suspect]
     Active Substance: LEVOTHYROXINE
     Indication: HYPOTHYROIDISM
     Dosage: UNK
  4. SPIRIVA [Suspect]
     Active Substance: TIOTROPIUM BROMIDE MONOHYDRATE
     Indication: CHRONIC OBSTRUCTIVE PULMONARY DISEASE
     Route: 055
     Dates: start: 2008
  5. CANDESARTAN. [Suspect]
     Active Substance: CANDESARTAN
     Indication: HYPERTENSION
     Route: 048
     Dates: start: 2005
  6. IBANDRONIC ACID. [Suspect]
     Active Substance: IBANDRONIC ACID
     Dosage: UNK
  7. OMEPRAZOLE. [Suspect]
     Active Substance: OMEPRAZOLE
     Indication: GASTRIC ULCER
     Route: 048
     Dates: start: 200510
  8. WARFARIN [Suspect]
     Active Substance: WARFARIN
     Indication: ATRIAL FIBRILLATION
     Dosage: 3 MG OR 4 MG DAILY
     Route: 048
     Dates: start: 2010
  9. GLYCERYL TRINITRATE [Suspect]
     Active Substance: NITROGLYCERIN
     Indication: ANGINA PECTORIS
     Route: 055
     Dates: start: 201904
  10. ATIMOS MODULITE [Suspect]
     Active Substance: FORMOTEROL FUMARATE
     Indication: CHRONIC OBSTRUCTIVE PULMONARY DISEASE
     Route: 055
     Dates: start: 201809
  11. IBANDRONIC ACID. [Suspect]
     Active Substance: IBANDRONIC ACID
     Indication: HIP FRACTURE
     Route: 048
     Dates: start: 20170107, end: 20190605
  12. VENTOLIN [Suspect]
     Active Substance: ALBUTEROL SULFATE
     Indication: CHRONIC OBSTRUCTIVE PULMONARY DISEASE
     Route: 051
     Dates: start: 2003
  13. LEVOTHYROXIN MERCURY PHARMA [Suspect]
     Active Substance: LEVOTHYROXINE
     Indication: HYPOTHYROIDISM
     Dosage: 25 MCG AND 50 MCG DAILY
     Route: 048
     Dates: start: 2009

REACTIONS (2)
  - Frequent bowel movements [Unknown]
  - Haematochezia [Unknown]
